FAERS Safety Report 10977038 (Version 4)
Quarter: 2015Q2

REPORT INFORMATION
  Report Type: Spontaneous
  Country: US (occurrence: US)
  Receive Date: 20150402
  Receipt Date: 20150617
  Transmission Date: 20150821
  Serious: Yes (Death, Hospitalization)
  Sender: FDA-Public Use
  Company Number: US-ROCHE-1559586

PATIENT
  Age: 52 Year
  Sex: Male

DRUGS (13)
  1. VICODIN [Suspect]
     Active Substance: ACETAMINOPHEN\HYDROCODONE BITARTRATE
     Indication: PRODUCT USED FOR UNKNOWN INDICATION
     Route: 065
  2. AMBIEN [Concomitant]
     Active Substance: ZOLPIDEM TARTRATE
  3. NADOLOL. [Concomitant]
     Active Substance: NADOLOL
  4. LEDIPASVIR/SOFOSBUVIR [Concomitant]
     Active Substance: LEDIPASVIR\SOFOSBUVIR
     Dosage: 90/400MG TABLET
     Route: 048
     Dates: start: 20150117, end: 20150209
  5. HARVONI [Suspect]
     Active Substance: LEDIPASVIR\SOFOSBUVIR
     Indication: HEPATITIS C
     Dosage: 90/400 MG
     Route: 048
     Dates: start: 20150117, end: 20150209
  6. CELEXA (UNITED STATES) [Concomitant]
  7. SOVALDI [Concomitant]
     Active Substance: SOFOSBUVIR
  8. XIFAXAN [Concomitant]
     Active Substance: RIFAXIMIN
  9. RIBAVIRIN. [Concomitant]
     Active Substance: RIBAVIRIN
     Route: 065
  10. ERGOCALCIFEROL. [Concomitant]
     Active Substance: ERGOCALCIFEROL
  11. RIFAXIMIN [Concomitant]
     Active Substance: RIFAXIMIN
  12. VALIUM [Suspect]
     Active Substance: DIAZEPAM
     Indication: PRODUCT USED FOR UNKNOWN INDICATION
     Dosage: OBTAINED ON THE STREET
     Route: 065
  13. OLYSIO [Concomitant]
     Active Substance: SIMEPREVIR
     Dosage: DURATION 7 DAYS
     Route: 065

REACTIONS (2)
  - Completed suicide [Fatal]
  - Intentional overdose [Unknown]

NARRATIVE: CASE EVENT DATE: 20150204
